FAERS Safety Report 9322151 (Version 2)
Quarter: 2013Q2

REPORT INFORMATION
  Report Type: Spontaneous
  Country: US (occurrence: US)
  Receive Date: 20130531
  Receipt Date: 20130619
  Transmission Date: 20140414
  Serious: Yes (Other)
  Sender: FDA-Public Use
  Company Number: US-JNJFOC-20130514769

PATIENT
  Age: 23 Year
  Sex: Male
  Weight: 89.36 kg

DRUGS (3)
  1. INVEGA SUSTENNA [Suspect]
     Indication: SCHIZOPHRENIA
     Route: 030
     Dates: start: 201302
  2. INVEGA SUSTENNA [Suspect]
     Indication: SCHIZOPHRENIA
     Route: 030
     Dates: start: 201102, end: 201302
  3. ATIVAN [Concomitant]
     Indication: ANXIETY
     Dosage: 1-2MG TABLETS AS NEEDED ONCE A WEEK
     Route: 048

REACTIONS (11)
  - Paranoia [Not Recovered/Not Resolved]
  - Delusion [Not Recovered/Not Resolved]
  - Performance status decreased [Not Recovered/Not Resolved]
  - Non-alcoholic steatohepatitis [Not Recovered/Not Resolved]
  - Blister [Unknown]
  - Nightmare [Unknown]
  - Application site erythema [Unknown]
  - Wrong technique in drug usage process [Not Recovered/Not Resolved]
  - Pain in extremity [Not Recovered/Not Resolved]
  - Injection site swelling [Not Recovered/Not Resolved]
  - Burning sensation [Unknown]
